FAERS Safety Report 8031839-1 (Version None)
Quarter: 2012Q1

REPORT INFORMATION
  Report Type: 
  Country: None (occurrence: None)
  Receive Date: 20120109
  Receipt Date: 20111227
  Transmission Date: 20120608
  Serious: Yes (Hospitalization)
  Sender: FDA-Public Use
  Company Number: PHHO2011BE021386

PATIENT
  Sex: Male
  Weight: 102 kg

DRUGS (10)
  1. ASPIRIN [Suspect]
  2. SIMVASTATIN [Concomitant]
     Indication: HYPERCHOLESTEROLAEMIA
     Dosage: 40 MG, QD
     Route: 048
     Dates: start: 20091203
  3. BLINDED ALISKIREN [Suspect]
     Indication: CORONARY ARTERY DISEASE
     Dosage: CODE NOT BROKEN
     Route: 048
     Dates: start: 20100104, end: 20111207
  4. PLACEBO [Suspect]
     Indication: CORONARY ARTERY DISEASE
     Dosage: CODE NOT BROKEN
     Route: 048
     Dates: start: 20100104, end: 20111207
  5. ASAFLOW [Concomitant]
     Indication: PROPHYLAXIS
     Dosage: 80 MG, QD
     Route: 048
     Dates: start: 20091207
  6. BLINDED ALISKIREN [Suspect]
     Dosage: CODE NOT BROKEN
     Route: 048
     Dates: start: 20111217
  7. BLINDED NO TREATMENT RECEIVED [Suspect]
     Indication: CORONARY ARTERY DISEASE
     Dosage: CODE NOT BROKEN
     Route: 048
     Dates: start: 20100104, end: 20111207
  8. BLINDED NO TREATMENT RECEIVED [Suspect]
     Dosage: CODE NOT BROKEN
     Route: 048
     Dates: start: 20111217
  9. PLACEBO [Suspect]
     Dosage: CODE NOT BROKEN
     Route: 048
     Dates: start: 20111217
  10. BISOPROLOL FUMARATE [Concomitant]
     Indication: HYPERTENSION
     Dosage: 2.5 MG, QD
     Route: 048
     Dates: start: 20091216

REACTIONS (2)
  - UPPER GASTROINTESTINAL HAEMORRHAGE [None]
  - CONCOMITANT DISEASE PROGRESSION [None]
